FAERS Safety Report 6547780-7 (Version None)
Quarter: 2010Q1

REPORT INFORMATION
  Report Type: 
  Country: None (occurrence: None)
  Receive Date: 20100124
  Receipt Date: 20091027
  Transmission Date: 20100710
  Serious: No
  Sender: FDA-Public Use
  Company Number: US-ALEXION-A200900834

PATIENT
  Sex: Female

DRUGS (9)
  1. SOLIRIS [Suspect]
     Indication: PAROXYSMAL NOCTURNAL HAEMOGLOBINURIA
     Dosage: 600 MG, QW
     Route: 042
     Dates: start: 20080915, end: 20081007
  2. SOLIRIS [Suspect]
     Dosage: 900 MG, Q2WK
     Route: 042
     Dates: start: 20081013
  3. LYSINE [Concomitant]
     Dosage: UNK
     Route: 048
  4. SYNTHROID [Concomitant]
     Dosage: UNK
     Route: 048
  5. LEXAPRO [Concomitant]
     Dosage: UNK
     Route: 048
  6. FOSAMAX [Concomitant]
     Dosage: UNK
     Route: 048
  7. LIPITOR [Concomitant]
     Dosage: UNK
     Route: 048
  8. MULTIVITAMIN                       /00831701/ [Concomitant]
     Dosage: UNK
     Route: 048
  9. CALCIUM [Concomitant]
     Dosage: UNK
     Route: 048

REACTIONS (2)
  - DIARRHOEA [None]
  - VOMITING [None]
